FAERS Safety Report 4279222-9 (Version None)
Quarter: 2004Q1

REPORT INFORMATION
  Report Type: 
  Country: None (occurrence: None)
  Receive Date: 20040122
  Receipt Date: 20040113
  Transmission Date: 20041129
  Serious: Yes (Life-Threatening)
  Sender: FDA-Public Use
  Company Number: CIP04000068

PATIENT
  Age: 72 Year
  Sex: Female

DRUGS (8)
  1. ACTONEL [Suspect]
     Indication: OSTEOPOROSIS
     Dosage: SEE IMAGE
     Route: 048
     Dates: start: 20030414, end: 20030609
  2. ACTONEL [Suspect]
     Indication: OSTEOPOROSIS
     Dosage: SEE IMAGE
     Route: 048
     Dates: start: 20030704, end: 20030728
  3. ALFACALCIDOL (ALFACALCIDOL) [Concomitant]
  4. LOXONIN (LOXOPROFEN SODIUM ) [Concomitant]
  5. ALANTA SF (ALDIOXA) [Concomitant]
  6. AMLODIPINE BESYLATE [Concomitant]
  7. ELCATONIN (ELCATONIN) [Concomitant]
  8. MOHRUS (KETOPROFEN) [Concomitant]

REACTIONS (8)
  - ASPARTATE AMINOTRANSFERASE INCREASED [None]
  - BLOOD LACTATE DEHYDROGENASE INCREASED [None]
  - BLOOD POTASSIUM DECREASED [None]
  - BLOOD URIC ACID INCREASED [None]
  - HAEMATOCRIT DECREASED [None]
  - HAEMOGLOBIN DECREASED [None]
  - HYPOGLYCAEMIA [None]
  - RED BLOOD CELL COUNT DECREASED [None]
